FAERS Safety Report 10019375 (Version 1)
Quarter: 2014Q1

REPORT INFORMATION
  Report Type: Spontaneous
  Country: US (occurrence: US)
  Receive Date: 20140318
  Receipt Date: 20140318
  Transmission Date: 20141002
  Serious: Yes (Other)
  Sender: FDA-Public Use
  Company Number: US-BAYER-2014-038693

PATIENT
  Age: 80 Year
  Sex: Male
  Weight: 73 kg

DRUGS (4)
  1. BAYER ASPIRIN REGIMEN ADULT LOW STRENGTH [Suspect]
     Indication: THROMBOSIS PROPHYLAXIS
     Dosage: 1 DF, QD
     Route: 048
     Dates: start: 2012, end: 201402
  2. BAYER ASPIRIN REGIMEN ADULT LOW STRENGTH [Interacting]
     Indication: THROMBOSIS PROPHYLAXIS
     Dosage: 1 DF, QD
     Route: 048
  3. ALEVE CAPLET [Interacting]
     Indication: ARTHRALGIA
     Dosage: 1 DF, QD
     Route: 048
     Dates: start: 2002, end: 201402
  4. ALEVE CAPLET [Interacting]
     Indication: ARTHRALGIA
     Dosage: 1 DF, QD
     Route: 048

REACTIONS (5)
  - Urinary bladder haemorrhage [None]
  - Bladder operation [None]
  - Off label use [None]
  - Incorrect drug administration duration [None]
  - Drug interaction [None]
